FAERS Safety Report 9422850 (Version 2)
Quarter: 2013Q3

REPORT INFORMATION
  Report Type: Spontaneous
  Country: US (occurrence: None)
  Receive Date: 20130724
  Receipt Date: 20130725
  Transmission Date: 20140515
  Serious: Yes (Death, Hospitalization)
  Sender: FDA-Public Use
  Company Number: US-JNJFOC-20130706360

PATIENT
  Sex: Female
  Weight: 84 kg

DRUGS (2)
  1. DACOGEN (DECITABINE) LYOPHILIZED POWDER [Suspect]
     Indication: ACUTE MYELOID LEUKAEMIA
     Route: 042
     Dates: start: 20130225
  2. BORTEZOMIB [Suspect]
     Indication: ACUTE MYELOID LEUKAEMIA
     Route: 058
     Dates: start: 20130225

REACTIONS (13)
  - Vomiting [None]
  - Diarrhoea [None]
  - Abdominal pain [None]
  - Tachypnoea [None]
  - Tachycardia [None]
  - Hypotension [None]
  - Respiratory failure [None]
  - Renal failure acute [None]
  - Occult blood positive [None]
  - Pericardial effusion [None]
  - Liver function test abnormal [None]
  - Multi-organ failure [None]
  - Sepsis [None]
